FAERS Safety Report 6595054-0 (Version None)
Quarter: 2010Q1

REPORT INFORMATION
  Report Type: 
  Country: None (occurrence: None)
  Receive Date: 20100222
  Receipt Date: 20100217
  Transmission Date: 20100710
  Serious: Yes (Hospitalization)
  Sender: FDA-Public Use
  Company Number: DE-SANOFI-AVENTIS-2010SA009317

PATIENT
  Age: 64 Year
  Sex: Male

DRUGS (5)
  1. OXALIPLATIN [Suspect]
     Indication: RECTAL CANCER METASTATIC
     Route: 041
  2. OXALIPLATIN [Suspect]
     Route: 041
     Dates: start: 20090302, end: 20090302
  3. CAPECITABINE [Suspect]
     Indication: RECTAL CANCER METASTATIC
     Route: 048
  4. CAPECITABINE [Suspect]
     Route: 048
     Dates: start: 20090302, end: 20090315
  5. BEVACIZUMAB [Concomitant]
     Indication: DRUG USE FOR UNKNOWN INDICATION

REACTIONS (6)
  - DECREASED APPETITE [None]
  - DIARRHOEA [None]
  - DUODENITIS [None]
  - GASTRITIS [None]
  - REFLUX OESOPHAGITIS [None]
  - VOMITING [None]
